FAERS Safety Report 16087574 (Version 5)
Quarter: 2019Q2

REPORT INFORMATION
  Report Type: Spontaneous
  Country: US (occurrence: US)
  Receive Date: 20190319
  Receipt Date: 20190420
  Transmission Date: 20190711
  Serious: Yes (Death, Life-Threatening, Hospitalization, Other)
  Sender: FDA-Public Use
  Company Number: US-UNITED THERAPEUTICS-UNT-2019-004539

PATIENT
  Age: 20 Year
  Sex: Male
  Weight: 62.13 kg

DRUGS (6)
  1. AMBRISENTAN [Suspect]
     Active Substance: AMBRISENTAN
     Indication: PULMONARY ARTERIAL HYPERTENSION
  2. REMODULIN [Suspect]
     Active Substance: TREPROSTINIL
     Indication: PULMONARY ARTERIAL HYPERTENSION
     Dosage: 0.110 ?G/KG, CONTINUING
     Route: 041
     Dates: start: 20190221
  3. AMBRISENTAN [Suspect]
     Active Substance: AMBRISENTAN
     Indication: HEART DISEASE CONGENITAL
  4. AMBRISENTAN [Suspect]
     Active Substance: AMBRISENTAN
     Indication: PULMONARY ARTERIAL HYPERTENSION
     Dosage: 10 MG, QD
     Route: 065
     Dates: start: 20190219
  5. REMODULIN [Suspect]
     Active Substance: TREPROSTINIL
     Dosage: UNK
     Route: 065
  6. LASIX [Suspect]
     Active Substance: FUROSEMIDE
     Indication: PRODUCT USED FOR UNKNOWN INDICATION
     Dosage: UNK
     Route: 065

REACTIONS (12)
  - Nausea [Unknown]
  - Depressed level of consciousness [Unknown]
  - Haemoptysis [Unknown]
  - Cardiac failure [Unknown]
  - Cardiogenic shock [Unknown]
  - Vomiting [Unknown]
  - Bacteraemia [Not Recovered/Not Resolved]
  - Blood pressure decreased [Unknown]
  - Bronchial disorder [Unknown]
  - Cardio-respiratory arrest [Fatal]
  - Pulmonary hypertension [Fatal]
  - Oxygen consumption increased [Unknown]

NARRATIVE: CASE EVENT DATE: 20190308
